FAERS Safety Report 7427607-1 (Version None)
Quarter: 2011Q2

REPORT INFORMATION
  Report Type: 
  Country: None (occurrence: None)
  Receive Date: 20110420
  Receipt Date: 20110407
  Transmission Date: 20111010
  Serious: Yes (Other)
  Sender: FDA-Public Use
  Company Number: US-MYLANLABS-2011S1007501

PATIENT
  Age: 11 Year
  Sex: Male

DRUGS (2)
  1. LAMOTRIGINE [Suspect]
     Indication: PETIT MAL EPILEPSY
     Dosage: 5.5 MG/KG/DAY
     Route: 065
  2. LAMOTRIGINE [Suspect]
     Dosage: 7 MG/KG/DAY
     Route: 065

REACTIONS (1)
  - OCULOGYRIC CRISIS [None]
